FAERS Safety Report 24137829 (Version 1)
Quarter: 2024Q3

REPORT INFORMATION
  Report Type: Spontaneous
  Country: US (occurrence: None)
  Receive Date: 20240725
  Receipt Date: 20240725
  Transmission Date: 20241017
  Serious: Yes (unspecified)
  Sender: Public
  Company Number: None

PATIENT
  Age: 84 Year
  Sex: Male
  Weight: 72.9 kg

DRUGS (3)
  1. ERLEADA [Suspect]
     Active Substance: APALUTAMIDE
     Indication: Prostate cancer
     Dosage: FREQUENCY : DAILY;?
     Route: 048
     Dates: start: 20240119, end: 20240513
  2. LUPRON [Concomitant]
     Active Substance: LEUPROLIDE ACETATE
     Dates: start: 20231122
  3. TAMSULOSIN [Concomitant]
     Active Substance: TAMSULOSIN

REACTIONS (2)
  - Ageusia [None]
  - Weight decreased [None]

NARRATIVE: CASE EVENT DATE: 20240201
